FAERS Safety Report 16599477 (Version 2)
Quarter: 2020Q2

REPORT INFORMATION
  Report Type: Report from Study
  Country: US (occurrence: US)
  Receive Date: 20190719
  Receipt Date: 20200427
  Transmission Date: 20200713
  Serious: No
  Sender: FDA-Public Use
  Company Number: PHEH2019US029874

PATIENT
  Sex: Female

DRUGS (2)
  1. COSENTYX [Suspect]
     Active Substance: SECUKINUMAB
     Indication: PSORIATIC ARTHROPATHY
  2. COSENTYX [Suspect]
     Active Substance: SECUKINUMAB
     Indication: PSORIASIS
     Dosage: 300 MG, ONCE WEEKLY FOR 5 WEEKS, THEN ONCE
     Route: 058
     Dates: start: 20190708

REACTIONS (3)
  - Urinary tract infection [Unknown]
  - Nasopharyngitis [Unknown]
  - Rash [Unknown]
